FAERS Safety Report 14384306 (Version 2)
Quarter: 2018Q1

REPORT INFORMATION
  Report Type: Spontaneous
  Country: US (occurrence: US)
  Receive Date: 20180115
  Receipt Date: 20180213
  Transmission Date: 20180509
  Serious: No
  Sender: FDA-Public Use
  Company Number: US-PFIZER INC-2018018275

PATIENT
  Age: 75 Year
  Sex: Female

DRUGS (1)
  1. PREMARIN [Suspect]
     Active Substance: ESTROGENS, CONJUGATED
     Indication: MENOPAUSAL SYMPTOMS
     Dosage: 1 DF, DAILY
     Dates: start: 1980, end: 2003

REACTIONS (2)
  - Hot flush [Unknown]
  - Insomnia [Unknown]

NARRATIVE: CASE EVENT DATE: 2003
